FAERS Safety Report 5786955-1 (Version None)
Quarter: 2008Q2

REPORT INFORMATION
  Report Type: 
  Country: None (occurrence: None)
  Receive Date: 20080625
  Receipt Date: 20080506
  Transmission Date: 20081010
  Serious: No
  Sender: FDA-Public Use
  Company Number: US-BAYER-200822750NA

PATIENT
  Sex: Female

DRUGS (3)
  1. CLIMARA [Suspect]
     Indication: MENOPAUSAL SYMPTOMS
     Route: 062
     Dates: start: 19950101
  2. VIVELLE [Concomitant]
  3. VITAMINS [Concomitant]

REACTIONS (6)
  - ANXIETY [None]
  - CHILLS [None]
  - CRYING [None]
  - HOT FLUSH [None]
  - IRRITABILITY [None]
  - MENOPAUSAL SYMPTOMS [None]
